FAERS Safety Report 12982382 (Version 3)
Quarter: 2016Q4

REPORT INFORMATION
  Report Type: Report from Study
  Country: IT (occurrence: IT)
  Receive Date: 20161129
  Receipt Date: 20161226
  Transmission Date: 20170207
  Serious: Yes (Death, Life-Threatening, Hospitalization)
  Sender: FDA-Public Use
  Company Number: PHHY2016IT147810

PATIENT
  Age: 56 Year
  Sex: Female
  Weight: 77 kg

DRUGS (10)
  1. GILENYA [Suspect]
     Active Substance: FINGOLIMOD HYDROCHLORIDE
     Indication: MULTIPLE SCLEROSIS
     Dosage: 0.5 MG, QD
     Route: 048
     Dates: start: 20130711, end: 20161020
  2. TAMSULOSINA [Concomitant]
     Active Substance: TAMSULOSIN HYDROCHLORIDE
     Indication: BLADDER DYSFUNCTION
     Dosage: 0.4 MG, QD
     Route: 065
     Dates: start: 2016
  3. EFFICIB [Concomitant]
     Active Substance: METFORMIN HYDROCHLORIDE\SITAGLIPTIN PHOSPHATE
     Indication: TYPE 2 DIABETES MELLITUS
     Dosage: 100 MG, QD
     Route: 065
     Dates: start: 2015
  4. REPAGLINIDE. [Concomitant]
     Active Substance: REPAGLINIDE
     Indication: TYPE 2 DIABETES MELLITUS
     Dosage: UNK
     Route: 065
     Dates: start: 2013
  5. CARDIOASPIRINA [Concomitant]
     Active Substance: ASPIRIN
     Indication: CARDIOVASCULAR EVENT PROPHYLAXIS
     Dosage: 100 MG, QD
     Route: 065
     Dates: start: 2016
  6. SEROQUEL [Concomitant]
     Active Substance: QUETIAPINE FUMARATE
     Indication: BIPOLAR DISORDER
     Dosage: 50 MG, QD
     Route: 065
     Dates: start: 2016
  7. DROPAXIN [Concomitant]
     Indication: BIPOLAR DISORDER
     Dosage: 20 DRP, QD
     Route: 065
     Dates: start: 2012
  8. TRITTICO [Concomitant]
     Active Substance: TRAZODONE HYDROCHLORIDE
     Indication: BIPOLAR DISORDER
     Dosage: 150 MG, QD
     Route: 065
     Dates: start: 2015
  9. XANAX [Concomitant]
     Active Substance: ALPRAZOLAM
     Indication: BIPOLAR DISORDER
     Dosage: 8 DRP, QD
     Route: 065
     Dates: start: 2015
  10. NEBILOX [Concomitant]
     Active Substance: NEBIVOLOL HYDROCHLORIDE
     Indication: HYPERTENSION
     Dosage: 5 MG, QD
     Route: 065
     Dates: start: 2016

REACTIONS (10)
  - General physical health deterioration [Unknown]
  - Dehydration [Unknown]
  - Pneumonia [Unknown]
  - Pleural effusion [Unknown]
  - Vomiting [Unknown]
  - Acute kidney injury [Unknown]
  - Anaemia [Unknown]
  - Pulmonary mycosis [Fatal]
  - Metabolic acidosis [Unknown]
  - Candida infection [Unknown]

NARRATIVE: CASE EVENT DATE: 20161020
